FAERS Safety Report 9702204 (Version 1)
Quarter: 2013Q4

REPORT INFORMATION
  Report Type: Spontaneous
  Country: US (occurrence: None)
  Receive Date: 20131119
  Receipt Date: 20131119
  Transmission Date: 20140711
  Serious: Yes (Life-Threatening)
  Sender: FDA-Public Use
  Company Number: 2013606

PATIENT
  Age: 6 Month
  Sex: Male

DRUGS (2)
  1. AZITHROMYCIN [Suspect]
     Indication: LUNG INFILTRATION
     Route: 042
  2. CEFTRIAXONE SODIUM [Concomitant]

REACTIONS (7)
  - Circulatory collapse [None]
  - Off label use [None]
  - Accidental overdose [None]
  - Bradycardia [None]
  - Hypotension [None]
  - Unresponsive to stimuli [None]
  - Brain death [None]
